FAERS Safety Report 7683911-3 (Version None)
Quarter: 2011Q3

REPORT INFORMATION
  Report Type: 
  Country: None (occurrence: None)
  Receive Date: 20110815
  Receipt Date: 20110810
  Transmission Date: 20111222
  Serious: Yes (Hospitalization, Other)
  Sender: FDA-Public Use
  Company Number: BR-PFIZER INC-2010145834

PATIENT
  Age: 51 Year
  Sex: Female
  Weight: 71 kg

DRUGS (6)
  1. LOSARTAN POTASSIUM [Concomitant]
     Indication: HYPERTENSION
     Dosage: 50 MG, 2X/DAY
     Dates: start: 20010101
  2. VARENICLINE TARTRATE [Suspect]
     Dosage: UNK MG, 2X/DAY
     Route: 048
     Dates: start: 20101111, end: 20100101
  3. VARENICLINE TARTRATE [Suspect]
     Dosage: UNK
     Dates: start: 20101228
  4. VARENICLINE TARTRATE [Suspect]
     Indication: TOBACCO USER
     Dosage: UNK
     Route: 048
     Dates: start: 20101101, end: 20101101
  5. VARENICLINE TARTRATE [Suspect]
     Dosage: 0.5 MG, 2X/DAY
     Dates: end: 20110201
  6. SYNTHROID [Concomitant]
     Indication: HYPERTHYROIDISM
     Dosage: 75 MG, 1X/DAY
     Dates: start: 20010101

REACTIONS (6)
  - PAIN [None]
  - CONFUSIONAL STATE [None]
  - DYSPNOEA [None]
  - VISION BLURRED [None]
  - POST PROCEDURAL COMPLICATION [None]
  - HAEMORRHOID OPERATION [None]
